FAERS Safety Report 22594624 (Version 1)
Quarter: 2023Q2

REPORT INFORMATION
  Report Type: Other
  Country: None (occurrence: IE)
  Receive Date: 20230613
  Receipt Date: 20230613
  Transmission Date: 20230721
  Serious: Yes (Hospitalization)
  Sender: FDA-Public Use
  Company Number: IE-B.Braun Medical Inc.-2142642

PATIENT
  Age: 54 Year
  Sex: Female

DRUGS (1)
  1. ACETAMINOPHEN [Suspect]
     Active Substance: ACETAMINOPHEN
     Indication: Overdose

REACTIONS (6)
  - Blood urea increased [Unknown]
  - False negative investigation result [Unknown]
  - Laboratory test interference [Unknown]
  - Blood creatinine increased [Unknown]
  - Renal impairment [Unknown]
  - Intentional overdose [Unknown]
